FAERS Safety Report 9377341 (Version 1)
Quarter: 2013Q3

REPORT INFORMATION
  Report Type: Spontaneous
  Country: AR (occurrence: AR)
  Receive Date: 20130701
  Receipt Date: 20130701
  Transmission Date: 20140515
  Serious: Yes (Congenital Anomaly)
  Sender: FDA-Public Use
  Company Number: PHHY2013AR067510

PATIENT
  Sex: 0

DRUGS (1)
  1. GILENYA [Suspect]
     Indication: MULTIPLE SCLEROSIS
     Dosage: UNK
     Route: 064
     Dates: end: 20121202

REACTIONS (4)
  - Cardiac disorder [Unknown]
  - Trisomy 21 [Unknown]
  - Cyst [Unknown]
  - Foetal exposure during pregnancy [Unknown]
